FAERS Safety Report 10025386 (Version 1)
Quarter: 2014Q1

REPORT INFORMATION
  Report Type: Spontaneous
  Country: AU (occurrence: AU)
  Receive Date: 20140320
  Receipt Date: 20140320
  Transmission Date: 20141002
  Serious: Yes (Other)
  Sender: FDA-Public Use
  Company Number: AU-BAYER-2014-038778

PATIENT
  Age: 57 Year
  Sex: 0

DRUGS (1)
  1. STIVARGA [Suspect]
     Dosage: UNK
     Dates: start: 201402

REACTIONS (1)
  - Bacterial sepsis [Not Recovered/Not Resolved]
